FAERS Safety Report 22947243 (Version 2)
Quarter: 2024Q1

REPORT INFORMATION
  Report Type: Spontaneous
  Country: US (occurrence: None)
  Receive Date: 20230915
  Receipt Date: 20240320
  Transmission Date: 20240409
  Serious: Yes (Other)
  Sender: FDA-Public Use
  Company Number: US-ROCHE-3321785

PATIENT
  Age: 67 Year
  Sex: Male

DRUGS (7)
  1. VABYSMO [Suspect]
     Active Substance: FARICIMAB\FARICIMAB-SVOA
     Indication: Diabetic retinal oedema
     Dosage: 10/11/22, 09/12/22, 19/01/23, 16/02/23 ,16/03/23
     Route: 065
     Dates: start: 20221110
  2. SERTRALINE [Concomitant]
     Active Substance: SERTRALINE HYDROCHLORIDE
  3. GABAPENTIN [Concomitant]
     Active Substance: GABAPENTIN
  4. INSULIN NOS [Concomitant]
     Active Substance: INSULIN NOS
  5. VICTOZA [Concomitant]
     Active Substance: LIRAGLUTIDE
  6. ATORVASTATIN [Concomitant]
     Active Substance: ATORVASTATIN
  7. BETADINE [Concomitant]
     Active Substance: POVIDONE-IODINE

REACTIONS (4)
  - Iridocyclitis [Unknown]
  - Keratic precipitates [Unknown]
  - Ill-defined disorder [Recovered/Resolved]
  - Anterior chamber cell [Recovered/Resolved]
